FAERS Safety Report 5051083-X (Version None)
Quarter: 2006Q3

REPORT INFORMATION
  Report Type: 
  Country: None (occurrence: None)
  Receive Date: 20060710
  Receipt Date: 20060627
  Transmission Date: 20061208
  Serious: Yes (Other)
  Sender: FDA-Public Use
  Company Number: 2006081227

PATIENT

DRUGS (3)
  1. LYRICA [Suspect]
     Dosage: 300 MG (100 MG, 3 IN 1 D)
  2. VICODIN [Concomitant]
  3. CARBOPLATIN [Concomitant]

REACTIONS (3)
  - BLOOD PRESSURE DECREASED [None]
  - CONVULSION [None]
  - VOMITING PROJECTILE [None]
